FAERS Safety Report 5250134-7 (Version None)
Quarter: 2007Q1

REPORT INFORMATION
  Report Type: 
  Country: None (occurrence: None)
  Receive Date: 20070228
  Receipt Date: 20060210
  Transmission Date: 20070707
  Serious: Yes (Hospitalization)
  Sender: FDA-Public Use
  Company Number: US-GLAXOSMITHKLINE-A0593263A

PATIENT
  Age: 44 Year
  Sex: Female

DRUGS (5)
  1. LAMICTAL [Suspect]
     Indication: BIPOLAR DISORDER
     Route: 048
     Dates: start: 20051101, end: 20060101
  2. PROZAC [Concomitant]
  3. KLONOPIN [Concomitant]
  4. XANAX [Concomitant]
  5. VALTREX [Concomitant]

REACTIONS (1)
  - SUICIDAL IDEATION [None]
